FAERS Safety Report 8293980-8 (Version None)
Quarter: 2012Q2

REPORT INFORMATION
  Report Type: 
  Country: None (occurrence: None)
  Receive Date: 20120413
  Receipt Date: 20120413
  Transmission Date: 20120825
  Serious: Yes (Other)
  Sender: FDA-Public Use
  Company Number: None

PATIENT
  Sex: Female

DRUGS (1)
  1. COPAXONE [Suspect]
     Indication: MULTIPLE SCLEROSIS
     Dosage: 20 MG DAILY SUB Q
     Route: 058
     Dates: start: 20120114, end: 20120415

REACTIONS (2)
  - MULTIPLE SCLEROSIS RELAPSE [None]
  - GUILLAIN-BARRE SYNDROME [None]
